FAERS Safety Report 5707032-1 (Version None)
Quarter: 2008Q2

REPORT INFORMATION
  Report Type: 
  Country: None (occurrence: None)
  Receive Date: 20080416
  Receipt Date: 20080408
  Transmission Date: 20081010
  Serious: Yes (Other)
  Sender: FDA-Public Use
  Company Number: B0360823A

PATIENT
  Age: 35 Year
  Sex: Female

DRUGS (6)
  1. PAROXETINE HCL [Suspect]
     Route: 065
     Dates: start: 19941117
  2. PAROXETINE HCL [Suspect]
     Dosage: 24MG PER DAY
     Route: 065
  3. CITALOPRAM HYDROBROMIDE [Concomitant]
     Dates: start: 19991201
  4. AMITRIPTYLINE HCL [Concomitant]
     Dates: start: 20030224
  5. CITALOPRAM HYDROBROMIDE [Concomitant]
     Dates: start: 19991130
  6. PROZAC [Concomitant]

REACTIONS (21)
  - AMNESIA [None]
  - ARTHRALGIA [None]
  - CRYING [None]
  - DEPRESSION [None]
  - DISTURBANCE IN ATTENTION [None]
  - DIZZINESS [None]
  - DRUG WITHDRAWAL SYNDROME [None]
  - FEELING ABNORMAL [None]
  - GASTRIC DISORDER [None]
  - HEADACHE [None]
  - HYPERHIDROSIS [None]
  - INSOMNIA [None]
  - MALAISE [None]
  - MOOD SWINGS [None]
  - NAUSEA [None]
  - NIGHTMARE [None]
  - PANIC ATTACK [None]
  - PARAESTHESIA [None]
  - PRURITUS GENERALISED [None]
  - SUICIDAL IDEATION [None]
  - TINNITUS [None]
